FAERS Safety Report 7942425-3 (Version None)
Quarter: 2011Q4

REPORT INFORMATION
  Report Type: 
  Country: None (occurrence: None)
  Receive Date: 20111128
  Receipt Date: 20111116
  Transmission Date: 20120403
  Serious: Yes (Hospitalization)
  Sender: FDA-Public Use
  Company Number: US-GLAXOSMITHKLINE-A0780655A

PATIENT
  Age: 55 Year
  Sex: Male
  Weight: 118.2 kg

DRUGS (8)
  1. AMARYL [Concomitant]
     Dates: start: 20010901, end: 20021101
  2. GLUCOVANCE [Concomitant]
  3. STARLIX [Concomitant]
     Dates: start: 20010901, end: 20021101
  4. OMACOR [Concomitant]
  5. GLARGINE [Concomitant]
     Dates: start: 20000101
  6. AVANDIA [Suspect]
     Indication: DIABETES MELLITUS
     Route: 048
     Dates: start: 20010901, end: 20070604
  7. VYTORIN [Concomitant]
  8. UNIVASC [Concomitant]

REACTIONS (2)
  - CEREBROVASCULAR ACCIDENT [None]
  - HYPERTENSION [None]
